FAERS Safety Report 6231757-5 (Version None)
Quarter: 2009Q2

REPORT INFORMATION
  Report Type: 
  Country: None (occurrence: None)
  Receive Date: 20090616
  Receipt Date: 20090604
  Transmission Date: 20091009
  Serious: Yes (Hospitalization)
  Sender: FDA-Public Use
  Company Number: PHHY2009MX22063

PATIENT
  Age: 83 Year
  Sex: Female

DRUGS (3)
  1. DIOVAN HCT [Suspect]
     Indication: HYPERTENSION
     Dosage: 1 DF (80/12.5 MG)/ DAY
     Route: 048
  2. DIOVAN HCT [Suspect]
     Dosage: 0.5 DF (80/12.5 MG)/ DAY
     Route: 048
  3. ASPIRIN [Concomitant]
     Indication: PAIN
     Dosage: 1 DF/DAY
     Route: 048

REACTIONS (2)
  - CATARACT [None]
  - EYE OPERATION [None]
